FAERS Safety Report 19063572 (Version 1)
Quarter: 2021Q1

REPORT INFORMATION
  Report Type: Spontaneous
  Country: NL (occurrence: NL)
  Receive Date: 20210326
  Receipt Date: 20210326
  Transmission Date: 20210420
  Serious: Yes (Death, Hospitalization)
  Sender: FDA-Public Use
  Company Number: NL-PFIZER INC-2021282343

PATIENT
  Age: 62 Year
  Sex: Female
  Weight: 68 kg

DRUGS (5)
  1. IBRANCE [Suspect]
     Active Substance: PALBOCICLIB
     Indication: BREAST CANCER METASTATIC
     Dosage: 75 MG ONCE DAILY FOR 21 DAYS ON, 7 DAYS OFF
     Dates: start: 2019, end: 20210215
  2. MAGNESIUMHYDROXIDE [Concomitant]
     Dosage: CHEWING TABLET
  3. TACAL D3 [Concomitant]
     Dosage: CHEWING TABLET, 1,25 G
  4. XGEVA [Concomitant]
     Active Substance: DENOSUMAB
  5. LETROZOL [Concomitant]
     Active Substance: LETROZOLE

REACTIONS (3)
  - Neoplasm progression [Fatal]
  - Hepatic function abnormal [Fatal]
  - Hepatic failure [Fatal]

NARRATIVE: CASE EVENT DATE: 20210201
